FAERS Safety Report 8854310 (Version 1)
Quarter: 2012Q4

REPORT INFORMATION
  Report Type: Spontaneous
  Country: US (occurrence: None)
  Receive Date: 20121019
  Receipt Date: 20121019
  Transmission Date: 20130627
  Serious: Yes (Life-Threatening, Hospitalization)
  Sender: FDA-Public Use
  Company Number: None

PATIENT
  Age: 30 Year
  Sex: Female
  Weight: 74.39 kg

DRUGS (1)
  1. SULFAMETHOXAZOLE AND TRIMETHOPRIM DS [Suspect]
     Indication: UPPER RESPIRATORY INFECTION
     Route: 048
     Dates: start: 20121015, end: 20121015

REACTIONS (8)
  - Neuralgia [None]
  - Cough [None]
  - Hypersensitivity [None]
  - Vomiting [None]
  - Pain [None]
  - Paraesthesia oral [None]
  - Hypoaesthesia oral [None]
  - Oropharyngeal pain [None]
